FAERS Safety Report 10273128 (Version 3)
Quarter: 2014Q3

REPORT INFORMATION
  Report Type: Report from Study
  Country: US (occurrence: US)
  Receive Date: 20140702
  Receipt Date: 20140715
  Transmission Date: 20150326
  Serious: No
  Sender: FDA-Public Use
  Company Number: US-ACTELION-A-US2014-96296

PATIENT
  Age: 66 Year
  Sex: Male

DRUGS (7)
  1. VELETRI [Suspect]
     Active Substance: EPOPROSTENOL
     Dosage: 26.3 NG/KG, PER MIN
     Route: 042
  2. TRACLEER [Suspect]
     Active Substance: BOSENTAN\BOSENTAN MONOHYDRATE
     Indication: PORTOPULMONARY HYPERTENSION
     Dosage: 125 MG, BID
     Route: 048
     Dates: start: 200905
  3. VELETRI [Suspect]
     Active Substance: EPOPROSTENOL
     Indication: PORTOPULMONARY HYPERTENSION
     Dosage: 21.5 NG/KG, PER MIN
     Route: 042
     Dates: start: 20140228
  4. VELETRI [Suspect]
     Active Substance: EPOPROSTENOL
     Dosage: 26.6 NG/KG, PER MIN
     Route: 042
     Dates: start: 20140314
  5. VELETRI [Suspect]
     Active Substance: EPOPROSTENOL
     Dosage: 25.5 NG/KG, PER MIN
     Route: 042
  6. ADCIRCA [Concomitant]
     Active Substance: TADALAFIL
  7. RIOCIGUAT [Suspect]
     Active Substance: RIOCIGUAT
     Dosage: UNK
     Dates: end: 20140613

REACTIONS (30)
  - Condition aggravated [Not Recovered/Not Resolved]
  - Dyspnoea [Not Recovered/Not Resolved]
  - Malaise [Unknown]
  - Abdominal distension [Not Recovered/Not Resolved]
  - Catheter site erythema [Unknown]
  - Pain in extremity [Unknown]
  - Cardiac discomfort [Unknown]
  - Nausea [Unknown]
  - Catheter site pain [Unknown]
  - Catheter site inflammation [Unknown]
  - Catheter site pruritus [Unknown]
  - Pulmonary hypertension [Not Recovered/Not Resolved]
  - Anxiety [Unknown]
  - Weight decreased [Unknown]
  - Diarrhoea haemorrhagic [Unknown]
  - Headache [Unknown]
  - Catheter site vesicles [Unknown]
  - Clostridium difficile infection [Not Recovered/Not Resolved]
  - Pain in jaw [Unknown]
  - Epistaxis [Unknown]
  - Blood count [Unknown]
  - Eye haemorrhage [Unknown]
  - Feeling abnormal [Unknown]
  - Drug ineffective [Unknown]
  - Fatigue [Unknown]
  - Splenomegaly [Not Recovered/Not Resolved]
  - Abdominal pain upper [Unknown]
  - Rectal haemorrhage [Unknown]
  - Decreased appetite [Unknown]
  - Arthralgia [Unknown]

NARRATIVE: CASE EVENT DATE: 201303
